FAERS Safety Report 19135117 (Version 1)
Quarter: 2021Q2

REPORT INFORMATION
  Report Type: Spontaneous
  Country: DE (occurrence: DE)
  Receive Date: 20210414
  Receipt Date: 20210414
  Transmission Date: 20210717
  Serious: Yes (Other)
  Sender: FDA-Public Use
  Company Number: DE-ASTRAZENECA-2021A271882

PATIENT
  Sex: Male
  Weight: 122 kg

DRUGS (7)
  1. BUDESONIDE. [Suspect]
     Active Substance: BUDESONIDE
     Route: 065
     Dates: start: 201903
  2. FORMOLICH [Suspect]
     Active Substance: FORMOTEROL FUMARATE
     Route: 048
     Dates: start: 201903
  3. PRAVASTATIN. [Suspect]
     Active Substance: PRAVASTATIN
     Route: 048
     Dates: start: 200103, end: 201103
  4. TESTOSTERONE UNDECANOATE. [Suspect]
     Active Substance: TESTOSTERONE UNDECANOATE
     Route: 065
     Dates: start: 201703
  5. SALBUTAMOL [Suspect]
     Active Substance: ALBUTEROL
     Route: 065
     Dates: start: 200103
  6. CITALOPRAM [Concomitant]
     Active Substance: CITALOPRAM HYDROBROMIDE
     Route: 048
     Dates: start: 201903, end: 202003
  7. RAMILICH [Suspect]
     Active Substance: RAMIPRIL
     Dosage: 12.5 MG/ 5MG
     Route: 048
     Dates: start: 201703

REACTIONS (5)
  - Depressive symptom [Not Recovered/Not Resolved]
  - Libido disorder [Unknown]
  - Disturbance in attention [Not Recovered/Not Resolved]
  - Fatigue [Not Recovered/Not Resolved]
  - Erectile dysfunction [Unknown]

NARRATIVE: CASE EVENT DATE: 200603
